FAERS Safety Report 21991090 (Version 2)
Quarter: 2023Q2

REPORT INFORMATION
  Report Type: Report from Study
  Country: US (occurrence: US)
  Receive Date: 20230214
  Receipt Date: 20230501
  Transmission Date: 20230722
  Serious: Yes (Hospitalization, Other)
  Sender: FDA-Public Use
  Company Number: US-SA-SAC20230213001441

PATIENT
  Sex: Female
  Weight: 82.5 kg

DRUGS (3)
  1. DUPILUMAB [Suspect]
     Active Substance: DUPILUMAB
     Indication: Chronic myeloid leukaemia
     Dosage: 300 MG, QOW
     Route: 058
     Dates: start: 20221116
  2. DUPILUMAB [Suspect]
     Active Substance: DUPILUMAB
     Indication: Illness
  3. DUPILUMAB [Suspect]
     Active Substance: DUPILUMAB
     Indication: Nasal polyps

REACTIONS (3)
  - Anaphylactic shock [Unknown]
  - Oropharyngeal discomfort [Unknown]
  - Product use in unapproved indication [Unknown]
